FAERS Safety Report 6992400-0 (Version None)
Quarter: 2010Q3

REPORT INFORMATION
  Report Type: 
  Country: None (occurrence: None)
  Receive Date: 20100917
  Receipt Date: 20100913
  Transmission Date: 20110219
  Serious: Yes (Other)
  Sender: FDA-Public Use
  Company Number: US-TEVA-248248USA

PATIENT
  Age: 43 Year
  Sex: Female

DRUGS (2)
  1. NEFAZODONE HCL TABLETS, 50MG, 100MG, 150MG, 200MG, 250MG [Suspect]
     Route: 048
  2. TRIAMCINOLONE [Interacting]

REACTIONS (3)
  - ADRENAL INSUFFICIENCY [None]
  - CUSHING'S SYNDROME [None]
  - DRUG INTERACTION [None]
